FAERS Safety Report 5737124-2 (Version None)
Quarter: 2008Q2

REPORT INFORMATION
  Report Type: 
  Country: None (occurrence: None)
  Receive Date: 20080513
  Receipt Date: 20080513
  Transmission Date: 20081010
  Serious: Yes (Hospitalization)
  Sender: FDA-Public Use
  Company Number: None

PATIENT
  Age: 32 Year
  Sex: Female
  Weight: 59.1 kg

DRUGS (17)
  1. DASATINIB [Suspect]
     Indication: BREAST CANCER METASTATIC
     Dosage: 50MG BID PO
     Route: 048
     Dates: start: 20080416, end: 20080511
  2. PREDNISONE TAB [Concomitant]
  3. KYTRIL [Concomitant]
  4. ATIVAN [Concomitant]
  5. AMBIEN [Concomitant]
  6. OXYCONTIN [Concomitant]
  7. OXYCODONE HCL [Concomitant]
  8. ADVIL [Concomitant]
  9. MULTI-VITAMIN [Concomitant]
  10. ASCORBIC ACID [Concomitant]
  11. VITAMIN B-12 [Concomitant]
  12. ZOMETA [Concomitant]
  13. IMITREX [Concomitant]
  14. DULCOLAX [Concomitant]
  15. EFFEXOR [Concomitant]
  16. NEURONTIN [Concomitant]
  17. METHADONE HCL [Concomitant]

REACTIONS (3)
  - CHEST PAIN [None]
  - DYSPNOEA EXERTIONAL [None]
  - PLEURITIC PAIN [None]
